FAERS Safety Report 20995001 (Version 1)
Quarter: 2022Q2

REPORT INFORMATION
  Report Type: Spontaneous
  Country: NL (occurrence: NL)
  Receive Date: 20220622
  Receipt Date: 20220622
  Transmission Date: 20220720
  Serious: Yes (Hospitalization)
  Sender: FDA-Public Use
  Company Number: None

PATIENT
  Sex: Male
  Weight: 75 kg

DRUGS (18)
  1. NINTEDANIB [Suspect]
     Active Substance: NINTEDANIB
     Indication: Interstitial lung disease
     Dates: start: 202205, end: 20220604
  2. METFORMINE TABLET   500MG / Brand name not specified [Concomitant]
     Indication: Product used for unknown indication
  3. CARBASALAATCALCIUM BRUISTABLET 100MG / ASCAL BRISPER CARDIO-NEURO BRUI [Concomitant]
     Indication: Product used for unknown indication
  4. PERINDOPRIL ERBUMINE [Concomitant]
     Active Substance: PERINDOPRIL ERBUMINE
     Indication: Product used for unknown indication
  5. FOLIC ACID [Concomitant]
     Active Substance: FOLIC ACID
     Indication: Product used for unknown indication
  6. TOLBUTAMIDE TABLET  500MG / TOLBUTAMIDE PCH TABLET  500MG - Non-Curren [Concomitant]
     Indication: Product used for unknown indication
  7. RISEDRONINEZUUR TABLET FO 35MG / Brand name not specified [Concomitant]
     Indication: Product used for unknown indication
  8. CLOBETASOL CREME  0,5MG/G / DERMOVATE HYDROFIELE CREME 0,5MG/G [Concomitant]
     Indication: Product used for unknown indication
  9. LOPERAMIDE CAPSULE 2MG / Brand name not specified [Concomitant]
     Indication: Product used for unknown indication
  10. METOPROLOL TABLET MGA  50MG (SUCCINAAT) / METOPROLOLSUCCINAAT SANDOZ R [Concomitant]
     Indication: Product used for unknown indication
  11. CALCIUMCARB/COLECALC KAUWTB 1,25G/440IE (500MG CA) / Brand name not sp [Concomitant]
     Indication: Product used for unknown indication
  12. ATORVASTATIN [Concomitant]
     Active Substance: ATORVASTATIN
     Indication: Product used for unknown indication
  13. INSULINE DETEMIR INJVLST 100E/ML / LEVEMIR FLEXPEN INJ 100E/ML PEN 3ML [Concomitant]
     Indication: Product used for unknown indication
  14. PANTOPRAZOLE [Concomitant]
     Active Substance: PANTOPRAZOLE
     Indication: Product used for unknown indication
  15. MACROGOL/ZOUTEN PDR V DRANK (MOVIC/MOLAX/LAXT/GEN) / MACROGOL EN ELECT [Concomitant]
     Indication: Product used for unknown indication
  16. NITROGLYCERINE SPRAY SUBLING. 0,4MG/DO / Brand name not specified [Concomitant]
     Indication: Product used for unknown indication
  17. ISOSORBIDEMONONITRAAT TABLET MGA  30MG / Brand name not specified [Concomitant]
     Indication: Product used for unknown indication
  18. PREDNISOLON TABLET  5MG / Brand name not specified [Concomitant]
     Indication: Product used for unknown indication

REACTIONS (2)
  - Dyspnoea [Recovering/Resolving]
  - Decreased appetite [Unknown]
